FAERS Safety Report 24725465 (Version 1)
Quarter: 2024Q4

REPORT INFORMATION
  Report Type: Report from Study
  Country: CA (occurrence: CA)
  Receive Date: 20241212
  Receipt Date: 20241212
  Transmission Date: 20250114
  Serious: Yes (Hospitalization)
  Sender: AMGEN
  Company Number: CA-AMGEN-CANSL2024081832

PATIENT
  Age: 30 Year
  Sex: Male

DRUGS (1)
  1. AVSOLA [Suspect]
     Active Substance: INFLIXIMAB-AXXQ
     Indication: Crohn^s disease
     Dosage: 10 MILLIGRAM/KILOGRAM, Q4WK
     Route: 065

REACTIONS (7)
  - Dehydration [Recovering/Resolving]
  - Vomiting [Recovering/Resolving]
  - Blood creatinine increased [Recovering/Resolving]
  - Off label use [Unknown]
  - Abdominal pain [Unknown]
  - Diarrhoea [Unknown]
  - Nausea [Unknown]

NARRATIVE: CASE EVENT DATE: 20240422
